FAERS Safety Report 25347394 (Version 1)
Quarter: 2025Q2

REPORT INFORMATION
  Report Type: Spontaneous
  Country: US (occurrence: US)
  Receive Date: 20250522
  Receipt Date: 20250522
  Transmission Date: 20250716
  Serious: No
  Sender: CALLIDITAS THERAPEUTICS AB
  Company Number: US-Calliditas-2025CAL01287

PATIENT
  Age: 79 Year
  Sex: Male

DRUGS (8)
  1. TARPEYO [Suspect]
     Active Substance: BUDESONIDE
     Indication: IgA nephropathy
     Route: 048
     Dates: start: 20250409
  2. ALLOPURINOL [Concomitant]
     Active Substance: ALLOPURINOL
  3. ATORVASTATIN [Concomitant]
     Active Substance: ATORVASTATIN
  4. CALCIUM 600+D [CALCIUM;COLECALCIFEROL] [Concomitant]
  5. FARXIGA [Concomitant]
     Active Substance: DAPAGLIFLOZIN PROPANEDIOL
  6. GLUCOSAMINE [Concomitant]
     Active Substance: GLUCOSAMINE
  7. LOKELMA [SODIUM ZIRCONIUM CYCLOSILICATE] [Concomitant]
  8. LOSARTAN [Concomitant]
     Active Substance: LOSARTAN

REACTIONS (3)
  - Muscle spasms [Unknown]
  - Sleep disorder [Unknown]
  - Intentional dose omission [Unknown]

NARRATIVE: CASE EVENT DATE: 20250509
